FAERS Safety Report 9490477 (Version 2)
Quarter: 2013Q4

REPORT INFORMATION
  Report Type: Spontaneous
  Country: US (occurrence: US)
  Receive Date: 20130830
  Receipt Date: 20131204
  Transmission Date: 20140711
  Serious: Yes (Death, Other)
  Sender: FDA-Public Use
  Company Number: US-SHIRE-ALL1-2013-05847

PATIENT
  Sex: 0

DRUGS (1)
  1. 433 (CARBAMAZEPINE) [Suspect]
     Indication: FOETAL EXPOSURE DURING PREGNANCY
     Dosage: UNK UNK, UNKNOWN
     Route: 064
     Dates: start: 2003

REACTIONS (3)
  - Stillbirth [Fatal]
  - Trisomy 13 [Fatal]
  - Foetal exposure during pregnancy [Recovered/Resolved]
